FAERS Safety Report 24822509 (Version 2)
Quarter: 2025Q1

REPORT INFORMATION
  Report Type: Spontaneous
  Country: FI (occurrence: FI)
  Receive Date: 20250109
  Receipt Date: 20250302
  Transmission Date: 20250409
  Serious: Yes (Other)
  Sender: NOVO NORDISK
  Company Number: FI-NOVOPROD-1344221

PATIENT
  Age: 50 Year
  Sex: Male
  Weight: 120 kg

DRUGS (2)
  1. OZEMPIC [Suspect]
     Active Substance: SEMAGLUTIDE
     Indication: Obesity
  2. OZEMPIC [Suspect]
     Active Substance: SEMAGLUTIDE
     Indication: Glucose tolerance impaired
     Dosage: 1 MG, QW
     Dates: start: 202410

REACTIONS (3)
  - Facial paralysis [Recovering/Resolving]
  - Cerebral infarction [Unknown]
  - Off label use [Unknown]

NARRATIVE: CASE EVENT DATE: 20241001
